FAERS Safety Report 16909670 (Version 7)
Quarter: 2022Q4

REPORT INFORMATION
  Report Type: Spontaneous
  Country: FR (occurrence: FR)
  Receive Date: 20191011
  Receipt Date: 20221103
  Transmission Date: 20230113
  Serious: Yes (Hospitalization, Other)
  Sender: FDA-Public Use
  Company Number: FR-OTSUKA-2018_030883

PATIENT
  Sex: Male

DRUGS (10)
  1. ABILIFY [Suspect]
     Active Substance: ARIPIPRAZOLE
     Indication: Schizoid personality disorder
     Dosage: 5 MG, QD
     Route: 065
     Dates: start: 201806, end: 201806
  2. ABILIFY [Suspect]
     Active Substance: ARIPIPRAZOLE
     Indication: Autism spectrum disorder
     Dosage: 10 MG, QD
     Route: 065
     Dates: start: 2003, end: 201803
  3. ABILIFY [Suspect]
     Active Substance: ARIPIPRAZOLE
     Indication: Post-traumatic stress disorder
     Dosage: 15 MG, QD
     Route: 065
     Dates: start: 2003, end: 201804
  4. ABILIFY [Suspect]
     Active Substance: ARIPIPRAZOLE
     Indication: Anxiety
     Dosage: 1 DF, QD
     Route: 048
  5. ABILIFY [Suspect]
     Active Substance: ARIPIPRAZOLE
     Indication: Depression
  6. EFFEXOR [Suspect]
     Active Substance: VENLAFAXINE HYDROCHLORIDE
     Indication: Product used for unknown indication
     Dosage: 10 MG, UNK
     Route: 065
  7. EFFEXOR [Suspect]
     Active Substance: VENLAFAXINE HYDROCHLORIDE
     Dosage: 15 MG, UNK
     Route: 065
  8. EFFEXOR [Suspect]
     Active Substance: VENLAFAXINE HYDROCHLORIDE
     Dosage: 5 MG, UNK
     Route: 065
  9. MIRTAZAPINE [Concomitant]
     Active Substance: MIRTAZAPINE
     Indication: Depression
     Dosage: UNK
     Route: 065
  10. MIRTAZAPINE [Concomitant]
     Active Substance: MIRTAZAPINE
     Indication: Sleep disorder

REACTIONS (30)
  - Autism spectrum disorder [Unknown]
  - Bipolar disorder [Unknown]
  - Delusion [Unknown]
  - Delirium [Recovered/Resolved]
  - Diabetes mellitus [Not Recovered/Not Resolved]
  - Drug dependence [Unknown]
  - Affective disorder [Unknown]
  - Lacrimation increased [Recovering/Resolving]
  - Cardiac disorder [Unknown]
  - Rebound effect [Unknown]
  - Drug tolerance decreased [Unknown]
  - Adverse event [Unknown]
  - Crying [Recovered/Resolved]
  - Metabolic syndrome [Not Recovered/Not Resolved]
  - Impaired driving ability [Unknown]
  - Disorientation [Unknown]
  - Incoherent [Unknown]
  - Thinking abnormal [Recovered/Resolved]
  - Withdrawal syndrome [Unknown]
  - Behaviour disorder [Not Recovered/Not Resolved]
  - Confusional state [Unknown]
  - Nervousness [Unknown]
  - Hypersomnia [Unknown]
  - Sedation [Recovered/Resolved]
  - Weight increased [Recovered/Resolved]
  - Agitation [Unknown]
  - Tachycardia [Unknown]
  - Product use in unapproved indication [Unknown]
  - Therapy interrupted [Unknown]
  - Product prescribing issue [Unknown]

NARRATIVE: CASE EVENT DATE: 20030101
